FAERS Safety Report 24594730 (Version 4)
Quarter: 2024Q4

REPORT INFORMATION
  Report Type: Spontaneous
  Country: US (occurrence: US)
  Receive Date: 20241108
  Receipt Date: 20241122
  Transmission Date: 20250114
  Serious: Yes (Other)
  Sender: ASTELLAS
  Company Number: US-ASTELLAS-2024-AER-006714

PATIENT
  Age: 55 Year
  Sex: Female

DRUGS (1)
  1. VEOZAH [Suspect]
     Active Substance: FEZOLINETANT
     Indication: Menopausal symptoms
     Route: 048
     Dates: start: 20240403, end: 202409

REACTIONS (8)
  - Blood bilirubin increased [Recovering/Resolving]
  - Alanine aminotransferase increased [Recovering/Resolving]
  - Aspartate aminotransferase increased [Recovering/Resolving]
  - Serum ferritin increased [Recovering/Resolving]
  - Jaundice [Unknown]
  - Blood alkaline phosphatase increased [Unknown]
  - Weight decreased [Unknown]
  - Off label use [Unknown]

NARRATIVE: CASE EVENT DATE: 20240916
